FAERS Safety Report 10893049 (Version 2)
Quarter: 2015Q1

REPORT INFORMATION
  Report Type: Report from Study
  Country: US (occurrence: US)
  Receive Date: 20150306
  Receipt Date: 20150319
  Transmission Date: 20150721
  Serious: Yes (Hospitalization, Other)
  Sender: FDA-Public Use
  Company Number: US-GILEAD-2015-0140775

PATIENT
  Age: 44 Year
  Sex: Female

DRUGS (2)
  1. SILDENAFIL. [Concomitant]
     Active Substance: SILDENAFIL
  2. AMBRISENTAN [Suspect]
     Active Substance: AMBRISENTAN
     Indication: PRODUCT USED FOR UNKNOWN INDICATION
     Dosage: 10 MG, QD
     Route: 065
     Dates: start: 20111101

REACTIONS (9)
  - Cardiac failure congestive [Unknown]
  - Hypotension [Unknown]
  - Oedema [Unknown]
  - Internal haemorrhage [Unknown]
  - Weight increased [Unknown]
  - Arteriovenous malformation [Unknown]
  - Gastric haemorrhage [Unknown]
  - Hereditary disorder [Unknown]
  - Epistaxis [Unknown]
